FAERS Safety Report 5411002-0 (Version None)
Quarter: 2007Q3

REPORT INFORMATION
  Report Type: 
  Country: None (occurrence: None)
  Receive Date: 20070713
  Receipt Date: 20070614
  Transmission Date: 20080115
  Serious: No
  Sender: FDA-Public Use
  Company Number: 2007SP002248

PATIENT
  Age: 93 Year
  Sex: Female

DRUGS (2)
  1. LUNESTA [Suspect]
     Indication: INSOMNIA
     Dosage: 1 MG; ORAL 1 MG; ORAL
     Route: 048
     Dates: start: 20070613
  2. LUNESTA [Suspect]
     Indication: INSOMNIA
     Dosage: 1 MG; ORAL 1 MG; ORAL
     Route: 048
     Dates: start: 20070613

REACTIONS (2)
  - DRUG INEFFECTIVE [None]
  - INSOMNIA [None]
